FAERS Safety Report 6505155-0 (Version None)
Quarter: 2009Q4

REPORT INFORMATION
  Report Type: 
  Country: None (occurrence: None)
  Receive Date: 20091218
  Receipt Date: 20091209
  Transmission Date: 20100525
  Serious: Yes (Other)
  Sender: FDA-Public Use
  Company Number: PHHY2009JP37271

PATIENT
  Age: 48 Year
  Sex: Female

DRUGS (6)
  1. CYCLOSPORINE [Suspect]
     Indication: STEM CELL TRANSPLANT
     Dosage: UNK
     Dates: start: 20081001
  2. METHOTREXATE [Concomitant]
     Indication: STEM CELL TRANSPLANT
     Dosage: UNK
     Dates: start: 20081001
  3. IRRADIATION [Concomitant]
     Indication: STEM CELL TRANSPLANT
     Dosage: 10 GY
  4. ENDOXAN [Concomitant]
     Indication: STEM CELL TRANSPLANT
     Dosage: 60 MG/KG
  5. ENDOXAN [Concomitant]
     Dosage: 2600 MG DAILY
     Dates: start: 20080928, end: 20080929
  6. URSO 250 [Concomitant]
     Indication: VENOOCCLUSIVE LIVER DISEASE

REACTIONS (7)
  - ABDOMINAL PAIN UPPER [None]
  - DISSEMINATED INTRAVASCULAR COAGULATION [None]
  - FIBRIN DEGRADATION PRODUCTS INCREASED [None]
  - HEPATOMEGALY [None]
  - PLATELET COUNT DECREASED [None]
  - VENOOCCLUSIVE LIVER DISEASE [None]
  - WEIGHT INCREASED [None]
